FAERS Safety Report 15904253 (Version 1)
Quarter: 2019Q1

REPORT INFORMATION
  Report Type: Spontaneous
  Country: CA (occurrence: CA)
  Receive Date: 20190204
  Receipt Date: 20190204
  Transmission Date: 20190417
  Serious: Yes (Life-Threatening, Disabling)
  Sender: FDA-Public Use
  Company Number: CA-TEVA-2019-CA-1007198

PATIENT
  Age: 60 Year
  Sex: Female
  Weight: 90.8 kg

DRUGS (3)
  1. FLUOXETINE [Suspect]
     Active Substance: FLUOXETINE HYDROCHLORIDE
     Indication: DEPRESSION
     Dosage: 20 MILLIGRAM DAILY;
     Route: 048
  2. ZOPICLONE [Concomitant]
     Active Substance: ZOPICLONE
  3. PREGABALIN. [Concomitant]
     Active Substance: PREGABALIN

REACTIONS (6)
  - Apathy [Recovering/Resolving]
  - Depressed mood [Recovering/Resolving]
  - Impaired work ability [Recovering/Resolving]
  - Feeling abnormal [Recovering/Resolving]
  - Social avoidant behaviour [Recovering/Resolving]
  - Suicidal ideation [Recovering/Resolving]
